FAERS Safety Report 5223118-2 (Version None)
Quarter: 2007Q1

REPORT INFORMATION
  Report Type: 
  Country: None (occurrence: None)
  Receive Date: 20070122
  Receipt Date: 20070112
  Transmission Date: 20070707
  Serious: Yes (Life-Threatening, Hospitalization)
  Sender: FDA-Public Use
  Company Number: CHWYE140112JAN07

PATIENT
  Age: 72 Year
  Sex: Male

DRUGS (10)
  1. TAZOBAC (PIPERACILLIN/TAZOBACTAM,  INJECTION) [Suspect]
     Dosage: 1 DOSE 3X PER 1 DAY
     Dates: start: 20061006, end: 20061019
  2. CIPROFLOXACIN [Suspect]
     Indication: OSTEOMYELITIS
     Dosage: 750 MG + 500 MG PER DAY ORAL
     Route: 048
     Dates: start: 20061108, end: 20061129
  3. MARCOUMAR (PHENPROCOUMON, , 0) [Suspect]
     Indication: PERIPHERAL VASCULAR DISORDER
     Dosage: 1 DOSE 1X PER 1 DAY ORAL
     Route: 048
     Dates: start: 20061114, end: 20061128
  4. MERONEM (MEROPENEM, , 0) [Suspect]
     Indication: PNEUMONIA BACTERIAL
     Dosage: ORAL
     Route: 048
     Dates: start: 20061027, end: 20061108
  5. SEROQUEL [Suspect]
     Indication: SCHIZOPHRENIA, PARANOID TYPE
     Dosage: 25 MG 2X PER 1 DAY ORAL; LONG TERM
     Route: 048
     Dates: end: 20061129
  6. AMIODARONE HCL [Concomitant]
  7. RAMIPRIL [Concomitant]
  8. NITRODERM [Concomitant]
  9. LIQUEMINE (HEPARIN SODIUM) [Concomitant]
  10. ATORVASTATIN CALCIUM [Concomitant]

REACTIONS (5)
  - CHOLANGITIS [None]
  - CHOLELITHIASIS [None]
  - HEPATITIS CHOLESTATIC [None]
  - HEPATITIS TOXIC [None]
  - PNEUMONIA BACTERIAL [None]
